FAERS Safety Report 15770549 (Version 2)
Quarter: 2019Q2

REPORT INFORMATION
  Report Type: Spontaneous
  Country: US (occurrence: US)
  Receive Date: 20181228
  Receipt Date: 20190621
  Transmission Date: 20190711
  Serious: Yes (Other)
  Sender: FDA-Public Use
  Company Number: US-MACLEODS PHARMACEUTICALS US LTD-MAC2018019361

PATIENT

DRUGS (2)
  1. TRIAMCINOLONE [Suspect]
     Active Substance: TRIAMCINOLONE
     Indication: ARTHRITIS
  2. TRIAMCINOLONE [Suspect]
     Active Substance: TRIAMCINOLONE
     Indication: ARTHRITIS
     Dosage: 30 MILLIGRAM, INJECTION
     Route: 014

REACTIONS (5)
  - Injection site discolouration [Unknown]
  - Lipoatrophy [Recovering/Resolving]
  - Skin atrophy [Unknown]
  - Skin plaque [Recovering/Resolving]
  - Skin hypopigmentation [Recovering/Resolving]
